FAERS Safety Report 16902550 (Version 1)
Quarter: 2019Q4

REPORT INFORMATION
  Report Type: Spontaneous
  Country: GB (occurrence: GB)
  Receive Date: 20191010
  Receipt Date: 20191010
  Transmission Date: 20200122
  Serious: Yes (Hospitalization, Other)
  Sender: FDA-Public Use
  Company Number: GB-PFIZER INC-2019432634

PATIENT
  Age: 81 Year
  Sex: Male

DRUGS (20)
  1. AMIODARONE HCL [Suspect]
     Active Substance: AMIODARONE HYDROCHLORIDE
     Dosage: 200 MG, QD
     Route: 048
     Dates: start: 20190724, end: 20190905
  2. DERMOL 500 LOTION [Concomitant]
     Dosage: UNK UNK, UNK, DERMOL 500
     Route: 065
  3. PARACETAMOL [Concomitant]
     Active Substance: ACETAMINOPHEN
     Dosage: 500 MG, UNK
     Route: 065
  4. AMIODARONE HCL [Suspect]
     Active Substance: AMIODARONE HYDROCHLORIDE
     Indication: ATRIAL FIBRILLATION
     Dosage: 200 MG, TID
     Route: 048
     Dates: start: 20190716, end: 20190723
  5. CHLORAMPHENICOL [Concomitant]
     Active Substance: CHLORAMPHENICOL
     Dosage: UNK UNK, UNK
     Route: 065
  6. TAMSULOSIN HYDROCHLORIDE. [Concomitant]
     Active Substance: TAMSULOSIN HYDROCHLORIDE
     Dosage: 400 UG, UNK
     Route: 065
  7. CHLORPHENAMINE [Concomitant]
     Active Substance: CHLORPHENIRAMINE MALEATE
     Dosage: 4 MG, UNK
     Route: 065
  8. ANGITIL [Concomitant]
     Dosage: UNK UNK, UNK
     Route: 065
  9. ATORVASTATIN [Concomitant]
     Active Substance: ATORVASTATIN
     Dosage: 80 MG, UNK
     Route: 065
  10. BETAMETHASONE DIPROPIONATE/FUSIDIC ACID [Concomitant]
     Dosage: UNK
  11. WHITE SOFT PARAFFIN [Concomitant]
     Active Substance: PARAFFIN
     Dosage: UNK UNK, UNK, 50:50 LIQUID PARAFFIN WHITE SOFT PARAFFIN
     Route: 065
  12. SALBUTAMOL [Concomitant]
     Active Substance: ALBUTEROL
     Dosage: 2 DF, PRN, 100MCG/ACTUATION
     Route: 065
  13. WARFARIN SODIUM. [Concomitant]
     Active Substance: WARFARIN SODIUM
     Dosage: UNK UNK, UNK, 3MG AND 1MG
     Route: 065
  14. DERMOL 600 BATH EMOLLIENT [Concomitant]
     Dosage: UNK UNK, UNK, DERMOL 600
     Route: 065
  15. RIVAROXABAN [Concomitant]
     Active Substance: RIVAROXABAN
     Dosage: 20 MG, UNK
     Route: 065
  16. CLENIL MODULITE [Concomitant]
     Active Substance: BECLOMETHASONE DIPROPIONATE
     Dosage: 100 UG, UNK, 100MICROGRAMS/ACTUATION
     Route: 065
  17. LIQUID PARAFFIN [Concomitant]
     Dosage: UNK UNK, UNK, 50:50 LIQUID PARAFFIN WHITE SOFT PARAFFIN
     Route: 065
  18. SERTRALINE [Concomitant]
     Active Substance: SERTRALINE HYDROCHLORIDE
     Dosage: 50 MG, UNK
     Route: 065
  19. MOMETASONE [Concomitant]
     Active Substance: MOMETASONE
     Dosage: 50 UG, UNK, 50MICROGRAMS/ACTUATION
     Route: 065
  20. CARMELLOSE SODIUM [Concomitant]
     Active Substance: CARBOXYMETHYLCELLULOSE SODIUM
     Dosage: UNK UNK, UNK, PRESERVATIVE FREE
     Route: 065

REACTIONS (3)
  - Muscular weakness [Not Recovered/Not Resolved]
  - Alanine aminotransferase increased [Unknown]
  - Blood creatine phosphokinase increased [Not Recovered/Not Resolved]

NARRATIVE: CASE EVENT DATE: 20190829
